FAERS Safety Report 15700293 (Version 1)
Quarter: 2018Q4

REPORT INFORMATION
  Report Type: Spontaneous
  Country: GB (occurrence: GB)
  Receive Date: 20181207
  Receipt Date: 20181207
  Transmission Date: 20190205
  Serious: Yes (Death, Life-Threatening, Hospitalization)
  Sender: FDA-Public Use
  Company Number: GB-ALLERGAN-1856165US

PATIENT
  Age: 80 Year
  Sex: Female
  Weight: 56 kg

DRUGS (7)
  1. DIGOXIN. [Concomitant]
     Active Substance: DIGOXIN
  2. FERROUS GLUCONATE [Concomitant]
     Active Substance: FERROUS GLUCONATE
  3. SIMVASTATIN. [Concomitant]
     Active Substance: SIMVASTATIN
  4. MESALAZINE UNK [Suspect]
     Active Substance: MESALAMINE
     Indication: COLITIS ULCERATIVE
     Dosage: 4000 MG, QD
     Route: 048
     Dates: start: 20180815, end: 20181107
  5. EDOXABAN [Concomitant]
     Active Substance: EDOXABAN TOSYLATE
  6. RANITIDINE. [Concomitant]
     Active Substance: RANITIDINE
  7. LANSOPRAZOLE. [Concomitant]
     Active Substance: LANSOPRAZOLE

REACTIONS (5)
  - Lung disorder [Fatal]
  - Brain natriuretic peptide increased [Fatal]
  - Dyspnoea [Fatal]
  - Pulmonary embolism [Fatal]
  - Oedema peripheral [Fatal]

NARRATIVE: CASE EVENT DATE: 20181012
